FAERS Safety Report 8778718 (Version 1)
Quarter: 2012Q4

REPORT INFORMATION
  Report Type: 
  Country: US (occurrence: US)
  Receive Date: 20120912
  Receipt Date: 20120912
  Transmission Date: 20130627
  Serious: No
  Sender: FDA-Public Use
  Company Number: US-PFIZER INC-2012219666

PATIENT
  Sex: Female

DRUGS (7)
  1. ESTRING [Suspect]
     Indication: MENOPAUSAL SYMPTOMS
     Dosage: 2 mg, every 3 months
     Route: 067
     Dates: start: 20120824, end: 20120904
  2. ZOLOFT [Concomitant]
     Dosage: 200 mg, 1x/day
  3. CLOZAPINE [Concomitant]
     Dosage: 1 mg, UNK
  4. VITAMIN D3 [Concomitant]
     Dosage: 1000 Units, UNK
  5. SPIRONOLACTONE [Concomitant]
     Dosage: 50 mg, 2x/day
  6. DOXYCYCLINE [Concomitant]
     Dosage: 50 mg, 1x/day
  7. BENADRYL [Concomitant]
     Indication: HYPERSENSITIVITY
     Dosage: UNK

REACTIONS (10)
  - Gait disturbance [Not Recovered/Not Resolved]
  - Influenza like illness [Not Recovered/Not Resolved]
  - Chills [Not Recovered/Not Resolved]
  - Pyrexia [Not Recovered/Not Resolved]
  - Throat tightness [Not Recovered/Not Resolved]
  - Dysphagia [Not Recovered/Not Resolved]
  - Asthenia [Not Recovered/Not Resolved]
  - Decreased appetite [Not Recovered/Not Resolved]
  - Back pain [Recovered/Resolved]
  - Muscle spasms [Recovered/Resolved]
